FAERS Safety Report 6767779-5 (Version None)
Quarter: 2010Q2

REPORT INFORMATION
  Report Type: 
  Country: None (occurrence: None)
  Receive Date: 20100614
  Receipt Date: 20100601
  Transmission Date: 20101027
  Serious: Yes (Hospitalization)
  Sender: FDA-Public Use
  Company Number: PHHY2010JP32334

PATIENT
  Sex: Male

DRUGS (3)
  1. LEPONEX / CLOZARIL (CLOZAPINE) LEX+TAB [Suspect]
     Indication: SCHIZOPHRENIA
     Dosage: 300 MG/DAY
     Route: 048
     Dates: start: 20090803, end: 20090913
  2. LEPONEX / CLOZARIL (CLOZAPINE) LEX+TAB [Suspect]
     Dosage: 350 MG/DAY
     Route: 048
     Dates: start: 20090914
  3. SERENACE [Concomitant]
     Dosage: UNK
     Route: 048

REACTIONS (6)
  - ASTHENIA [None]
  - DECUBITUS ULCER [None]
  - PNEUMONIA [None]
  - SALIVARY HYPERSECRETION [None]
  - SCIATICA [None]
  - TREATMENT NONCOMPLIANCE [None]
